FAERS Safety Report 6338526-6 (Version None)
Quarter: 2009Q3

REPORT INFORMATION
  Report Type: 
  Country: None (occurrence: None)
  Receive Date: 20090901
  Receipt Date: 20090820
  Transmission Date: 20100115
  Serious: Yes (Other)
  Sender: FDA-Public Use
  Company Number: CERZ-1000703

PATIENT
  Sex: Female
  Weight: 42.3 kg

DRUGS (1)
  1. CEREZYME [Suspect]
     Indication: GAUCHER'S DISEASE
     Dosage: 60 U/KG, Q3W; INTRAVENOUS
     Route: 042
     Dates: start: 20041015

REACTIONS (7)
  - BLOOD ALDOSTERONE INCREASED [None]
  - HYPERTENSION [None]
  - OVARIAN DISORDER [None]
  - PROTEIN TOTAL INCREASED [None]
  - RENIN INCREASED [None]
  - TERATOMA [None]
  - UREA URINE INCREASED [None]
